FAERS Safety Report 16771028 (Version 1)
Quarter: 2019Q3

REPORT INFORMATION
  Report Type: Spontaneous
  Country: US (occurrence: US)
  Receive Date: 20190904
  Receipt Date: 20190904
  Transmission Date: 20191005
  Serious: Yes (Hospitalization)
  Sender: FDA-Public Use
  Company Number: US-PURDUE-USA-2019-0148139

PATIENT
  Age: 3 Year
  Sex: Male

DRUGS (1)
  1. SENNOSIDES. [Suspect]
     Active Substance: SENNOSIDES
     Indication: PRODUCT USED FOR UNKNOWN INDICATION
     Route: 048

REACTIONS (3)
  - Diarrhoea [Unknown]
  - Accidental exposure to product by child [Unknown]
  - Burns second degree [Recovering/Resolving]
